FAERS Safety Report 25206692 (Version 1)
Quarter: 2025Q2

REPORT INFORMATION
  Report Type: Spontaneous
  Country: US (occurrence: US)
  Receive Date: 20250417
  Receipt Date: 20250417
  Transmission Date: 20250717
  Serious: Yes (Hospitalization, Other)
  Sender: ASTELLAS
  Company Number: US-ASTELLAS-2025-AER-019891

PATIENT
  Age: 93 Year
  Sex: Female

DRUGS (1)
  1. MYRBETRIQ [Suspect]
     Active Substance: MIRABEGRON
     Indication: Product used for unknown indication
     Route: 065

REACTIONS (5)
  - Food poisoning [Unknown]
  - Spinal fracture [Unknown]
  - Impaired healing [Unknown]
  - Pollakiuria [Unknown]
  - Expired product administered [Unknown]

NARRATIVE: CASE EVENT DATE: 20240201
